FAERS Safety Report 18794013 (Version 2)
Quarter: 2022Q3

REPORT INFORMATION
  Report Type: Report from Study
  Country: BR (occurrence: BR)
  Receive Date: 20210127
  Receipt Date: 20220812
  Transmission Date: 20221027
  Serious: Yes (Other)
  Sender: FDA-Public Use
  Company Number: BR-JNJFOC-20210138625

PATIENT
  Age: 33 Year
  Sex: Male
  Weight: 70 kg

DRUGS (2)
  1. STELARA [Suspect]
     Active Substance: USTEKINUMAB
     Indication: Psoriasis
     Dosage: 0, 4 AND THEN EVERY 12 WEEKS
     Route: 058
     Dates: start: 20140506
  2. STELARA [Suspect]
     Active Substance: USTEKINUMAB

REACTIONS (4)
  - Appendicectomy [Unknown]
  - Hypoaesthesia [Unknown]
  - Product dose omission issue [Unknown]
  - Psoriasis [Not Recovered/Not Resolved]

NARRATIVE: CASE EVENT DATE: 20200101
